FAERS Safety Report 10622671 (Version 1)
Quarter: 2014Q4

REPORT INFORMATION
  Report Type: Spontaneous
  Country: US (occurrence: None)
  Receive Date: 20141202
  Receipt Date: 20141202
  Transmission Date: 20150529
  Serious: Yes (Life-Threatening, Other)
  Sender: FDA-Public Use
  Company Number: None

PATIENT
  Age: 44 Year
  Sex: Female
  Weight: 92.99 kg

DRUGS (2)
  1. METHOCARBAMOL. [Suspect]
     Active Substance: METHOCARBAMOL
     Indication: MUSCLE RELAXANT THERAPY
     Dosage: 1 TABLET
     Route: 048
     Dates: start: 20141119, end: 20141130
  2. METHOCARBAMOL. [Suspect]
     Active Substance: METHOCARBAMOL
     Indication: NECK PAIN
     Dosage: 1 TABLET
     Route: 048
     Dates: start: 20141119, end: 20141130

REACTIONS (4)
  - Suicidal ideation [None]
  - Migraine [None]
  - Pain [None]
  - Neck pain [None]

NARRATIVE: CASE EVENT DATE: 20141130
